FAERS Safety Report 12175900 (Version 2)
Quarter: 2016Q2

REPORT INFORMATION
  Report Type: Spontaneous
  Country: US (occurrence: US)
  Receive Date: 20160314
  Receipt Date: 20160426
  Transmission Date: 20160815
  Serious: Yes (Other)
  Sender: FDA-Public Use
  Company Number: US-PFIZER INC-2014340567

PATIENT
  Age: 71 Year
  Sex: Female

DRUGS (1)
  1. LYRICA [Suspect]
     Active Substance: PREGABALIN
     Indication: ASTHMA
     Dosage: 100 MG, 3X/DAY

REACTIONS (6)
  - Hypersomnia [Unknown]
  - Spinal cord disorder [Unknown]
  - Bronchitis [Unknown]
  - Product use issue [Unknown]
  - Mobility decreased [Unknown]
  - Pain [Unknown]
